FAERS Safety Report 24392737 (Version 2)
Quarter: 2024Q4

REPORT INFORMATION
  Report Type: Spontaneous
  Country: GB (occurrence: GB)
  Receive Date: 20241003
  Receipt Date: 20241006
  Transmission Date: 20250115
  Serious: Yes (Hospitalization, Other)
  Sender: DEXCEL
  Company Number: GB-MLMSERVICE-20240905-PI184950-00031-1

PATIENT
  Age: 62 Year
  Sex: Male

DRUGS (6)
  1. OMEPRAZOLE [Suspect]
     Active Substance: OMEPRAZOLE
     Indication: Infection
     Dosage: 40 MILLIGRAM, QD
     Dates: start: 2010
  2. PREDNISOLONE [Concomitant]
     Active Substance: PREDNISOLONE
     Indication: Eczema
     Dosage: 30 MILLIGRAM, QD
     Route: 048
     Dates: start: 2010
  3. TEICOPLANIN [Concomitant]
     Active Substance: TEICOPLANIN
     Dates: start: 2021
  4. IBUPROFEN [Concomitant]
     Active Substance: IBUPROFEN
     Indication: Pain
     Dosage: 400 MG TDS
     Dates: start: 2021
  5. FLUCLOXACILLIN [Concomitant]
     Active Substance: FLUCLOXACILLIN
     Indication: Folliculitis
     Dosage: 500MG TDS
     Dates: start: 2010
  6. PENICILLIN V [Concomitant]
     Active Substance: PENICILLIN V
     Indication: Folliculitis

REACTIONS (2)
  - Drug reaction with eosinophilia and systemic symptoms [Recovered/Resolved]
  - Dermatitis exfoliative [Recovered/Resolved]

NARRATIVE: CASE EVENT DATE: 20100101
